FAERS Safety Report 8342900-6 (Version None)
Quarter: 2012Q2

REPORT INFORMATION
  Report Type: 
  Country: None (occurrence: None)
  Receive Date: 20120508
  Receipt Date: 20120504
  Transmission Date: 20120825
  Serious: Yes (Hospitalization, Other)
  Sender: FDA-Public Use
  Company Number: US-PFIZER INC-2012110149

PATIENT
  Sex: Female
  Weight: 58.957 kg

DRUGS (2)
  1. NEURONTIN [Suspect]
     Indication: NEURALGIA
     Dosage: 300 MG, 3X/DAY
     Route: 048
     Dates: start: 20110501
  2. LORTAB [Concomitant]
     Dosage: UNK, 2X/DAY

REACTIONS (3)
  - PAIN [None]
  - HYPOAESTHESIA [None]
  - DRUG INEFFECTIVE [None]
